FAERS Safety Report 21932212 (Version 1)
Quarter: 2023Q1

REPORT INFORMATION
  Report Type: Spontaneous
  Country: US (occurrence: None)
  Receive Date: 20230131
  Receipt Date: 20230131
  Transmission Date: 20230418
  Serious: Yes (Other)
  Sender: FDA-Public Use
  Company Number: None

PATIENT
  Age: 79 Year
  Sex: Female
  Weight: 73.35 kg

DRUGS (23)
  1. SIMPONI ARIA [Suspect]
     Active Substance: GOLIMUMAB
     Indication: Rheumatoid arthritis
     Route: 042
     Dates: start: 20221212, end: 20221212
  2. ESTRATEST [Concomitant]
     Active Substance: ESTROGENS, ESTERIFIED\METHYLTESTOSTERONE
  3. Vit B6/folate [Concomitant]
  4. FOLIC ACID [Concomitant]
     Active Substance: FOLIC ACID
  5. VITAMIN B12 [Concomitant]
     Active Substance: CYANOCOBALAMIN
  6. lvermecin [Concomitant]
  7. Omega 3 [Concomitant]
  8. VITAMIN C [Concomitant]
     Active Substance: ASCORBIC ACID
  9. Vit  E [Concomitant]
  10. MAGNESIUM [Concomitant]
     Active Substance: MAGNESIUM
  11. Luetin [Concomitant]
  12. zeaxanthi/curaphen [Concomitant]
  13. Monolaiuirn [Concomitant]
  14. L Lysine [Concomitant]
  15. Collagen lodin drops [Concomitant]
  16. LUMBROKINASE [Concomitant]
  17. Methoxtrexate [Concomitant]
  18. METFORMIN [Concomitant]
     Active Substance: METFORMIN HYDROCHLORIDE
  19. Lutein /Zeaxanthin [Concomitant]
  20. VITAMIN D NOS [Concomitant]
     Active Substance: VITAMIN D NOS
  21. calcium and vitamin K [Concomitant]
  22. PEPCID [Concomitant]
     Active Substance: FAMOTIDINE
  23. ZINC [Concomitant]
     Active Substance: ZINC

REACTIONS (13)
  - Infusion related reaction [None]
  - Melanocytic naevus [None]
  - Skin weeping [None]
  - Eye swelling [None]
  - Oral infection [None]
  - Neoplasm skin [None]
  - Pustule [None]
  - Rheumatoid nodule [None]
  - Pain [None]
  - Impaired work ability [None]
  - Malaise [None]
  - Headache [None]
  - Influenza like illness [None]

NARRATIVE: CASE EVENT DATE: 20221212
